FAERS Safety Report 4774396-5 (Version None)
Quarter: 2005Q3

REPORT INFORMATION
  Report Type: 
  Country: None (occurrence: None)
  Receive Date: 20050919
  Receipt Date: 20050919
  Transmission Date: 20060218
  Serious: No
  Sender: FDA-Public Use
  Company Number: None

PATIENT
  Age: 44 Year
  Sex: Female

DRUGS (1)
  1. FERRLECIT [Suspect]
     Indication: IRON DEFICIENCY ANAEMIA

REACTIONS (4)
  - DYSPHONIA [None]
  - DYSPNOEA [None]
  - HEART RATE INCREASED [None]
  - SIMILAR REACTION ON PREVIOUS EXPOSURE TO DRUG [None]
